FAERS Safety Report 8234911-6 (Version None)
Quarter: 2012Q1

REPORT INFORMATION
  Report Type: 
  Country: None (occurrence: None)
  Receive Date: 20120326
  Receipt Date: 20120314
  Transmission Date: 20120608
  Serious: Yes (Death)
  Sender: FDA-Public Use
  Company Number: KR-SANOFI-AVENTIS-2012SA018091

PATIENT
  Age: 66 Year
  Sex: Male
  Weight: 85.3 kg

DRUGS (14)
  1. RAMOSETRON [Concomitant]
  2. MEGESTROL ACETATE [Concomitant]
     Dates: start: 20120118
  3. DEXAMETHASONE [Concomitant]
  4. TANTUM [Concomitant]
     Dates: start: 20120118
  5. OXYCONTIN [Concomitant]
     Dates: start: 20120117
  6. ACETYLCYSTEINE [Concomitant]
     Dates: start: 20120110
  7. LYRICA [Concomitant]
     Dates: start: 20111229
  8. DOCETAXEL [Suspect]
     Indication: NON-SMALL CELL LUNG CANCER STAGE IV
     Route: 042
     Dates: start: 20111025, end: 20111025
  9. DARBEPOETIN ALFA [Concomitant]
     Dates: start: 20111229
  10. METOCLOPRAMIDE [Concomitant]
  11. DOCETAXEL [Suspect]
     Route: 042
     Dates: start: 20120110, end: 20120110
  12. BLINDED THERAPY [Suspect]
     Indication: NON-SMALL CELL LUNG CANCER STAGE IV
     Route: 042
     Dates: start: 20111025, end: 20120110
  13. MESULID [Concomitant]
     Dates: start: 20120117
  14. XYZAL [Concomitant]
     Dates: start: 20111229

REACTIONS (7)
  - PNEUMONIA [None]
  - OPPORTUNISTIC INFECTION [None]
  - COUGH [None]
  - PYREXIA [None]
  - NEUTROPENIA [None]
  - ACUTE RESPIRATORY DISTRESS SYNDROME [None]
  - SPUTUM INCREASED [None]
